FAERS Safety Report 9233339 (Version 3)
Quarter: 2013Q3

REPORT INFORMATION
  Report Type: Spontaneous
  Country: IT (occurrence: IT)
  Receive Date: 20130416
  Receipt Date: 20130906
  Transmission Date: 20140515
  Serious: Yes (Hospitalization)
  Sender: FDA-Public Use
  Company Number: IT-ELI_LILLY_AND_COMPANY-IT201304002097

PATIENT
  Age: 78 Year
  Sex: Male

DRUGS (7)
  1. HUMALOG LISPRO [Suspect]
     Indication: TYPE 2 DIABETES MELLITUS
     Dosage: 25 IU, QD
     Route: 058
     Dates: start: 20100101, end: 20130307
  2. HUMALOG LISPRO [Suspect]
     Dosage: 12 IU, QD
     Dates: start: 20130308
  3. LANTUS [Concomitant]
     Indication: TYPE 2 DIABETES MELLITUS
     Dosage: 15 IU, QD
     Route: 058
     Dates: start: 20100101, end: 20130307
  4. LANTUS [Concomitant]
     Dosage: 10 IU, UNK
     Dates: start: 20130308
  5. FUROSEMIDE [Concomitant]
     Dosage: 50 MG, UNK
     Route: 048
  6. OMEPRAZOLE [Concomitant]
     Dosage: 20 MG, UNK
     Route: 048
  7. PREDNISONE [Concomitant]
     Dosage: 5 MG, UNK
     Route: 048

REACTIONS (7)
  - Hypoglycaemic unconsciousness [Recovered/Resolved]
  - Fall [Recovering/Resolving]
  - Femoral neck fracture [Recovering/Resolving]
  - Hepatic cyst [Unknown]
  - Haemangioma of liver [Unknown]
  - Cholelithiasis [Unknown]
  - Benign prostatic hyperplasia [Unknown]
